FAERS Safety Report 13586387 (Version 1)
Quarter: 2017Q2

REPORT INFORMATION
  Report Type: Spontaneous
  Country: US (occurrence: US)
  Receive Date: 20170526
  Receipt Date: 20170526
  Transmission Date: 20170830
  Serious: Yes (Other)
  Sender: FDA-Public Use
  Company Number: US-ASTELLAS-2017US020940

PATIENT
  Sex: Male

DRUGS (1)
  1. TARCEVA [Suspect]
     Active Substance: ERLOTINIB HYDROCHLORIDE
     Indication: NON-SMALL CELL LUNG CANCER STAGE IV
     Route: 048
     Dates: start: 2015

REACTIONS (6)
  - Lethargy [Not Recovered/Not Resolved]
  - Brain oedema [Unknown]
  - Feeling abnormal [Not Recovered/Not Resolved]
  - Brain neoplasm [Unknown]
  - Amnesia [Not Recovered/Not Resolved]
  - Cerebrovascular accident [Unknown]
